FAERS Safety Report 9701024 (Version 2)
Quarter: 2014Q1

REPORT INFORMATION
  Report Type: Report from Study
  Country: AT (occurrence: AT)
  Receive Date: 20131121
  Receipt Date: 20140102
  Transmission Date: 20141002
  Serious: Yes (Other)
  Sender: FDA-Public Use
  Company Number: AT-CELGENEUS-009-C5013-13111596

PATIENT
  Age: 73 Year
  Sex: Female
  Weight: 85 kg

DRUGS (2)
  1. CC-5013 [Suspect]
     Indication: PLASMA CELL MYELOMA
     Route: 048
     Dates: start: 20100629, end: 20100726
  2. DEXAMETHASONE [Suspect]
     Indication: PLASMA CELL MYELOMA
     Route: 065
     Dates: start: 20100629, end: 20100726

REACTIONS (1)
  - Myelodysplastic syndrome [Not Recovered/Not Resolved]
